FAERS Safety Report 4824192-5 (Version None)
Quarter: 2005Q4

REPORT INFORMATION
  Report Type: 
  Country: None (occurrence: None)
  Receive Date: 20051108
  Receipt Date: 20051027
  Transmission Date: 20060501
  Serious: Yes (Hospitalization)
  Sender: FDA-Public Use
  Company Number: USA0510112030

PATIENT
  Age: 54 Year
  Sex: Female
  Weight: 122 kg

DRUGS (3)
  1. HUMULIN R [Suspect]
     Indication: DIABETES MELLITUS NON-INSULIN-DEPENDENT
     Dates: start: 19980101
  2. HUMULIN 70/30 [Suspect]
     Indication: DIABETES MELLITUS NON-INSULIN-DEPENDENT
     Dosage: 130 U DAY
     Dates: start: 19990101
  3. NOVOLIN 70/30 [Concomitant]

REACTIONS (5)
  - BLISTER [None]
  - BLOOD GLUCOSE INCREASED [None]
  - NEUROPATHY PERIPHERAL [None]
  - SKIN LACERATION [None]
  - SKIN ULCER [None]
